FAERS Safety Report 20362791 (Version 2)
Quarter: 2022Q1

REPORT INFORMATION
  Report Type: Spontaneous
  Country: PK (occurrence: PK)
  Receive Date: 20220121
  Receipt Date: 20220127
  Transmission Date: 20220423
  Serious: Yes (Life-Threatening, Hospitalization, Other)
  Sender: FDA-Public Use
  Company Number: PK-MLMSERVICE-20220111-3310618-1

PATIENT
  Age: 4 Year
  Sex: Male

DRUGS (4)
  1. DOXORUBICIN HYDROCHLORIDE [Suspect]
     Active Substance: DOXORUBICIN HYDROCHLORIDE
     Indication: Hodgkin^s disease nodular sclerosis stage IV
     Dosage: AT DAYS 1 AND 15. 28-DAY INTERVAL
     Dates: start: 20200825
  2. DACARBAZINE [Suspect]
     Active Substance: DACARBAZINE
     Indication: Hodgkin^s disease nodular sclerosis stage IV
     Dosage: AT DAYS 1 AND 15. 28-DAY INTERVAL
     Dates: start: 20200825
  3. VINBLASTINE [Suspect]
     Active Substance: VINBLASTINE
     Indication: Hodgkin^s disease nodular sclerosis stage IV
     Dosage: AT DAYS 1 AND 15. 28-DAY INTERVAL
     Dates: start: 20200825
  4. BLEOMYCIN [Suspect]
     Active Substance: BLEOMYCIN SULFATE
     Indication: Hodgkin^s disease nodular sclerosis stage IV
     Dosage: AT DAYS 1 AND 15. 28-DAY INTERVAL
     Dates: start: 20200825

REACTIONS (5)
  - Septic shock [Unknown]
  - Haematotoxicity [Unknown]
  - Neutropenia [Unknown]
  - Epistaxis [Unknown]
  - Thrombocytopenia [Recovered/Resolved]

NARRATIVE: CASE EVENT DATE: 20200101
